FAERS Safety Report 8595667-0 (Version None)
Quarter: 2012Q3

REPORT INFORMATION
  Report Type: 
  Country: None (occurrence: None)
  Receive Date: 20120815
  Receipt Date: 20120808
  Transmission Date: 20120928
  Serious: Yes (Hospitalization, Other)
  Sender: FDA-Public Use
  Company Number: BR-PFIZER INC-2012193119

PATIENT
  Age: 57 Year
  Sex: Male
  Weight: 79 kg

DRUGS (2)
  1. METFORMIN HYDROCHLORIDE [Concomitant]
     Indication: DIABETES MELLITUS
     Dosage: 1500MG DAILY
     Dates: start: 20060101
  2. LATANOPROST [Suspect]
     Indication: GLAUCOMA
     Dosage: 3 UG, 1X/DAY (2 DROPS 1X/DAY, 1 DROP IN EACH EYE 1X/DAY)
     Route: 047
     Dates: start: 20020808, end: 20050101

REACTIONS (1)
  - GLAUCOMA [None]
